FAERS Safety Report 6440604-8 (Version None)
Quarter: 2009Q4

REPORT INFORMATION
  Report Type: 
  Country: None (occurrence: None)
  Receive Date: 20091113
  Receipt Date: 20091110
  Transmission Date: 20100525
  Serious: Yes (Death)
  Sender: FDA-Public Use
  Company Number: DE-GENENTECH-292815

PATIENT
  Sex: Male
  Weight: 79 kg

DRUGS (7)
  1. BEVACIZUMAB [Suspect]
     Indication: COLORECTAL CANCER METASTATIC
     Dosage: 400 MG, UNK
     Route: 042
     Dates: start: 20090512
  2. OXALIPLATIN [Suspect]
     Indication: COLORECTAL CANCER METASTATIC
     Dosage: 170 MG, UNK
     Route: 042
     Dates: start: 20090512
  3. FLUOROURACIL [Suspect]
     Indication: COLORECTAL CANCER METASTATIC
     Dosage: 800 MG, UNK
     Route: 040
     Dates: start: 20090512
  4. LEUCOVORIN [Suspect]
     Indication: COLORECTAL CANCER METASTATIC
     Dosage: 800 MG, UNK
     Route: 042
     Dates: start: 20090512
  5. BROMAZEPAM [Concomitant]
     Indication: DRUG USE FOR UNKNOWN INDICATION
  6. GRANISETRON HCL [Concomitant]
     Indication: DRUG USE FOR UNKNOWN INDICATION
     Dosage: UNK
     Dates: start: 20090512, end: 20090101
  7. DEXAMETHASONE [Concomitant]
     Indication: DRUG USE FOR UNKNOWN INDICATION
     Dosage: UNK
     Dates: start: 20090512, end: 20090101

REACTIONS (1)
  - DEATH [None]
